FAERS Safety Report 4570312-X (Version None)
Quarter: 2005Q1

REPORT INFORMATION
  Report Type: 
  Country: None (occurrence: None)
  Receive Date: 20050127
  Receipt Date: 20050127
  Transmission Date: 20050727
  Serious: Yes (Other)
  Sender: FDA-Public Use
  Company Number: None

PATIENT
  Age: 37 Year
  Sex: Male
  Weight: 110.2241 kg

DRUGS (1)
  1. DEPAKENE [Suspect]
     Dosage: 1500MG  QD ORAL
     Route: 048

REACTIONS (1)
  - STOMACH DISCOMFORT [None]
